FAERS Safety Report 9508702 (Version 1)
Quarter: 2013Q3

REPORT INFORMATION
  Report Type: Report from Study
  Country: JP (occurrence: JP)
  Receive Date: 20130909
  Receipt Date: 20130909
  Transmission Date: 20140515
  Serious: Yes (Other)
  Sender: FDA-Public Use
  Company Number: JP-VIIV HEALTHCARE LIMITED-B0875110A

PATIENT
  Age: 51 Year
  Sex: Male

DRUGS (21)
  1. LEXIVA [Suspect]
     Indication: HIV INFECTION
     Dosage: 700MG TWICE PER DAY
     Route: 048
     Dates: start: 20050830
  2. ZIAGEN [Suspect]
     Indication: HIV INFECTION
     Route: 048
     Dates: start: 20000208
  3. STOCRIN [Suspect]
     Indication: HIV INFECTION
     Route: 048
     Dates: start: 20010401
  4. NORVIR [Suspect]
     Indication: HIV INFECTION
     Route: 048
     Dates: start: 20050830, end: 20081110
  5. NORVIR [Suspect]
     Indication: HIV INFECTION
     Route: 048
     Dates: start: 20081111, end: 20110602
  6. PROZEI [Concomitant]
     Indication: HIV INFECTION
     Route: 048
     Dates: start: 20000208, end: 20050829
  7. NORVIR [Concomitant]
     Indication: HIV INFECTION
     Route: 048
     Dates: start: 20110603
  8. ALESION [Concomitant]
     Indication: RASH
     Dosage: 20MG PER DAY
     Route: 048
     Dates: start: 20050401, end: 20100901
  9. ALESION [Concomitant]
     Indication: RASH
     Dosage: 20MG PER DAY
     Route: 048
  10. HYDROCORTISONE [Concomitant]
     Indication: RASH
     Route: 061
     Dates: start: 20050401, end: 20051117
  11. MAINTATE [Concomitant]
     Indication: HYPERTENSION
     Dosage: 5MG PER DAY
     Route: 048
     Dates: start: 20050401
  12. LIDOMEX [Concomitant]
     Indication: RASH
     Route: 061
     Dates: start: 20051118
  13. MENTAX [Concomitant]
     Indication: RASH
     Route: 061
     Dates: start: 20060401
  14. ALOSITOL [Concomitant]
     Indication: HYPERURICAEMIA
     Dosage: 100MG PER DAY
     Route: 048
  15. LIPITOR [Concomitant]
     Indication: HYPERLIPIDAEMIA
     Dosage: 10MG PER DAY
     Route: 048
  16. LULICON [Concomitant]
     Indication: ONYCHOMYCOSIS
     Route: 061
  17. ZINC OXIDE [Concomitant]
     Indication: LICHEN PLANUS
     Route: 061
  18. METGLUCO [Concomitant]
     Indication: DIABETES MELLITUS
     Dosage: 250MG TWICE PER DAY
     Route: 048
     Dates: end: 20120606
  19. METGLUCO [Concomitant]
     Indication: DIABETES MELLITUS
     Dosage: 500MG TWICE PER DAY
     Route: 048
     Dates: start: 20120607
  20. VALTREX [Concomitant]
     Indication: GENITAL HERPES
     Dosage: 500MG TWICE PER DAY
     Route: 048
     Dates: start: 20120927, end: 20121001
  21. VALTREX [Concomitant]
     Indication: GENITAL HERPES
     Dosage: 500MG TWICE PER DAY
     Route: 048
     Dates: start: 20121203, end: 20121207

REACTIONS (9)
  - Diabetes mellitus [Not Recovered/Not Resolved]
  - Blood uric acid increased [Recovered/Resolved]
  - Blood lactic acid increased [Recovering/Resolving]
  - Blood pyruvic acid increased [Recovering/Resolving]
  - Hyperlipidaemia [Recovering/Resolving]
  - Blood uric acid increased [Recovering/Resolving]
  - Onychomycosis [Recovering/Resolving]
  - Genital herpes [Recovered/Resolved]
  - Genital herpes [Recovering/Resolving]
